FAERS Safety Report 9120034 (Version 1)
Quarter: 2013Q1

REPORT INFORMATION
  Report Type: Spontaneous
  Country: US (occurrence: None)
  Receive Date: 20130130
  Receipt Date: 20130130
  Transmission Date: 20140127
  Serious: Yes (Life-Threatening, Hospitalization, Disabling)
  Sender: FDA-Public Use
  Company Number: NZ-DEXPHARM-20130024

PATIENT
  Age: 27 Year
  Sex: Female

DRUGS (1)
  1. CHLORHEXIDINE [Suspect]

REACTIONS (8)
  - Arachnoiditis [None]
  - Injection site pain [None]
  - Headache [None]
  - Vomiting [None]
  - Back pain [None]
  - Blood pressure increased [None]
  - Hydrocephalus [None]
  - Paraplegia [None]
